FAERS Safety Report 10403001 (Version 1)
Quarter: 2014Q3

REPORT INFORMATION
  Report Type: Spontaneous
  Country: US (occurrence: None)
  Receive Date: 20140820
  Receipt Date: 20140820
  Transmission Date: 20150326
  Serious: Yes (Other)
  Sender: FDA-Public Use
  Company Number: NSR_01605_2014

PATIENT
  Age: 84 Year
  Sex: Male

DRUGS (3)
  1. DICLOFENAC 75 MG [Suspect]
     Active Substance: DICLOFENAC
     Indication: NECK PAIN
     Route: 048
  2. BACLOFEN 10 MG TABLETS [Suspect]
     Active Substance: BACLOFEN
     Indication: NECK PAIN
     Route: 048
  3. ACETAMINOPHEN. [Concomitant]
     Active Substance: ACETAMINOPHEN

REACTIONS (7)
  - Nephropathy [None]
  - Paradoxical drug reaction [None]
  - Toxicity to various agents [None]
  - Renal failure acute [None]
  - Neck pain [None]
  - Confusional state [None]
  - Dyskinesia [None]
